FAERS Safety Report 20165028 (Version 1)
Quarter: 2021Q4

REPORT INFORMATION
  Report Type: Spontaneous
  Country: ES (occurrence: ES)
  Receive Date: 20211209
  Receipt Date: 20211209
  Transmission Date: 20220304
  Serious: Yes (Other)
  Sender: FDA-Public Use
  Company Number: ES-ABBVIE-21K-144-4184983-00

PATIENT
  Age: 18 Year
  Sex: Male

DRUGS (1)
  1. VALPROATE [Interacting]
     Active Substance: VALPROIC ACID
     Indication: Epilepsy
     Route: 065

REACTIONS (3)
  - Drug interaction [Recovered/Resolved]
  - Food interaction [Recovered/Resolved]
  - Epilepsy [Recovered/Resolved]
